FAERS Safety Report 20235476 (Version 1)
Quarter: 2021Q4

REPORT INFORMATION
  Report Type: Spontaneous
  Country: US (occurrence: US)
  Receive Date: 20211228
  Receipt Date: 20211228
  Transmission Date: 20220303
  Serious: Yes (Other)
  Sender: FDA-Public Use
  Company Number: US-TOLMAR, INC.-21US032138

PATIENT
  Age: 67 Year
  Sex: Male

DRUGS (5)
  1. BETAMETHASONE DIPROPIONATE [Suspect]
     Active Substance: BETAMETHASONE DIPROPIONATE
     Indication: Rash
     Dosage: 0.05 UNK
  2. NIVOLUMAB [Suspect]
     Active Substance: NIVOLUMAB
     Indication: Renal cell carcinoma
     Dosage: 480 MILLIGRAM, EVERY 2 WEEKS
     Route: 042
     Dates: start: 20200526
  3. NIVOLUMAB [Suspect]
     Active Substance: NIVOLUMAB
     Dosage: 240 MILLIGRAM, EVERY 2 WEEKS
     Route: 042
     Dates: start: 201705
  4. NIVOLUMAB [Suspect]
     Active Substance: NIVOLUMAB
     Dosage: 480 MILLIGRAM, EVERY 2 WEEKS
     Route: 042
     Dates: start: 20180501
  5. NIVOLUMAB [Suspect]
     Active Substance: NIVOLUMAB
     Dosage: 480 MILLIGRAM, EVERY 2 WEEKS
     Route: 042
     Dates: start: 202006

REACTIONS (1)
  - Pemphigoid [Recovered/Resolved]
